FAERS Safety Report 11179163 (Version 1)
Quarter: 2015Q2

REPORT INFORMATION
  Report Type: Spontaneous
  Country: US (occurrence: US)
  Receive Date: 20150610
  Receipt Date: 20150610
  Transmission Date: 20150821
  Serious: No
  Sender: FDA-Public Use
  Company Number: US-TEVA-568841USA

PATIENT
  Sex: Female

DRUGS (1)
  1. COPAXONE [Suspect]
     Active Substance: GLATIRAMER ACETATE
     Indication: MULTIPLE SCLEROSIS
     Dosage: UNKNOWN FORM STRENGTH

REACTIONS (7)
  - Injection site erythema [Unknown]
  - Injection site mass [Unknown]
  - Balance disorder [Unknown]
  - Injection site swelling [Unknown]
  - Aphasia [Unknown]
  - Gait disturbance [Unknown]
  - Injection site pain [Unknown]
